FAERS Safety Report 16092950 (Version 1)
Quarter: 2019Q1

REPORT INFORMATION
  Report Type: Report from Study
  Country: NL (occurrence: NL)
  Receive Date: 20190320
  Receipt Date: 20190320
  Transmission Date: 20190418
  Serious: Yes (Hospitalization)
  Sender: FDA-Public Use
  Company Number: NL-AMGEN-NLDSL2019041442

PATIENT
  Age: 87 Year
  Sex: Male

DRUGS (10)
  1. LOSARTAN. [Concomitant]
     Active Substance: LOSARTAN
     Dosage: 100 MILLIGRAM, QD
     Route: 048
  2. GOSERELINE [Concomitant]
     Active Substance: GOSERELIN
     Dosage: 10 MILLIGRAM, QMO (1 IMPLANTION)
  3. MOMETASON [Concomitant]
     Active Substance: MOMETASONE FUROATE
     Dosage: UNK UNK^140DO^, QD
     Route: 045
  4. TIOTROPIUM [Concomitant]
     Active Substance: TIOTROPIUM
     Dosage: 13 MICROGRAM, QD(1C)
  5. XGEVA [Suspect]
     Active Substance: DENOSUMAB
     Indication: PROPHYLAXIS
     Dosage: 120 MILLIGRAM, Q4WK
     Route: 065
  6. CALCILAC [CALCIUM CARBONATE;COLECALCIFEROL] [Concomitant]
     Dosage: (1.25GRAM/400 IE) 500 MILLIGRAM, QD
     Route: 048
  7. FUROSEMIDE. [Concomitant]
     Active Substance: FUROSEMIDE
     Dosage: 20 MILLIGRAM ^3S1S^
     Route: 048
  8. PREDNISOLONE. [Concomitant]
     Active Substance: PREDNISOLONE
     Dosage: 5 MILLIGRAM, QD
     Route: 048
  9. DEXTRAN 70;HYPROMELLOSE [Concomitant]
     Dosage: 15 MILLILITER (2 DROPS PER 4 DAYS)
  10. GLIMEPIRIDE. [Concomitant]
     Active Substance: GLIMEPIRIDE
     Dosage: 1 MILLIGRAM
     Route: 048

REACTIONS (1)
  - Lung disorder [Unknown]
